FAERS Safety Report 10798397 (Version 2)
Quarter: 2015Q2

REPORT INFORMATION
  Report Type: Spontaneous
  Country: DE (occurrence: DE)
  Receive Date: 20150216
  Receipt Date: 20150413
  Transmission Date: 20150821
  Serious: Yes (Other)
  Sender: FDA-Public Use
  Company Number: PHHY2015DE017062

PATIENT
  Sex: Female

DRUGS (1)
  1. LEPONEX [Suspect]
     Active Substance: CLOZAPINE
     Indication: PRODUCT USED FOR UNKNOWN INDICATION
     Dosage: 125 MG, (25MG IN THE MORNING, 100MG IN THE EVENING)
     Route: 065
     Dates: start: 201310

REACTIONS (1)
  - Tonsillitis bacterial [Unknown]

NARRATIVE: CASE EVENT DATE: 20150210
